FAERS Safety Report 4831914-6 (Version None)
Quarter: 2005Q4

REPORT INFORMATION
  Report Type: 
  Country: None (occurrence: None)
  Receive Date: 20051118
  Receipt Date: 20051013
  Transmission Date: 20060501
  Serious: Yes (Other)
  Sender: FDA-Public Use
  Company Number: US-ROCHE-421754

PATIENT
  Age: 28 Year
  Sex: Female

DRUGS (5)
  1. ACCUTANE [Suspect]
     Route: 065
     Dates: start: 19871221, end: 19880615
  2. ACCUTANE [Suspect]
     Route: 065
     Dates: start: 19900925
  3. PROVERA [Concomitant]
  4. CLOMID [Concomitant]
  5. MULTI-VITAMINS [Concomitant]
     Indication: VITAMIN SUPPLEMENTATION

REACTIONS (4)
  - ABORTION MISSED [None]
  - BLIGHTED OVUM [None]
  - DRUG EXPOSURE DURING PREGNANCY [None]
  - PREGNANCY [None]
